FAERS Safety Report 10535473 (Version 1)
Quarter: 2014Q4

REPORT INFORMATION
  Report Type: Spontaneous
  Country: US (occurrence: US)
  Receive Date: 20141022
  Receipt Date: 20141022
  Transmission Date: 20150529
  Serious: No
  Sender: FDA-Public Use
  Company Number: US-PFIZER INC-2014287254

PATIENT
  Age: 74 Year
  Sex: Female
  Weight: 56.24 kg

DRUGS (4)
  1. TAFIL [Suspect]
     Active Substance: ALPRAZOLAM
     Indication: FEELING OF RELAXATION
     Dosage: 0.5 MG, UNK
  2. TAFIL [Suspect]
     Active Substance: ALPRAZOLAM
     Indication: SLEEP DISORDER
     Dosage: 1 MG, UNK
  3. OCUVITE [Concomitant]
     Active Substance: VITAMINS
     Indication: EYE DISORDER
     Dosage: UNK
  4. TAFIL [Suspect]
     Active Substance: ALPRAZOLAM
     Indication: MICTURITION URGENCY

REACTIONS (7)
  - Product use issue [Unknown]
  - Intentional product misuse [Unknown]
  - Feeling abnormal [Unknown]
  - Therapeutic response unexpected [Unknown]
  - Nervousness [Unknown]
  - Bladder disorder [Unknown]
  - Hypertension [Unknown]
